FAERS Safety Report 7588391-4 (Version None)
Quarter: 2011Q2

REPORT INFORMATION
  Report Type: 
  Country: None (occurrence: None)
  Receive Date: 20110627
  Receipt Date: 20110613
  Transmission Date: 20111010
  Serious: Yes (Other)
  Sender: FDA-Public Use
  Company Number: 2011AP001147

PATIENT
  Age: 11 Year
  Sex: Male

DRUGS (5)
  1. PROPOFOL [Suspect]
     Indication: GENERAL ANAESTHESIA
  2. ISOFLURANE [Suspect]
     Indication: GENERAL ANAESTHESIA
     Dosage: ;INH
     Route: 055
  3. THIOPENTAL SODIUM [Suspect]
     Indication: GENERAL ANAESTHESIA
  4. PANCURONIUM BROMIDE [Suspect]
     Indication: GENERAL ANAESTHESIA
  5. ONDANSETRON HYDROCHLORIDE [Suspect]
     Indication: VOMITING

REACTIONS (1)
  - TORSADE DE POINTES [None]
